FAERS Safety Report 7593002-8 (Version None)
Quarter: 2011Q3

REPORT INFORMATION
  Report Type: 
  Country: None (occurrence: None)
  Receive Date: 20110706
  Receipt Date: 20110630
  Transmission Date: 20111222
  Serious: Yes (Hospitalization)
  Sender: FDA-Public Use
  Company Number: GB-GLAXOSMITHKLINE-B0720242A

PATIENT
  Age: 29 Year
  Sex: Female

DRUGS (14)
  1. FAMCICLOVIR [Suspect]
     Route: 048
  2. ATRIPLA [Concomitant]
     Route: 065
  3. HYDROCORTISONE [Suspect]
     Indication: RASH MACULAR
     Route: 042
  4. PREDNISOLONE [Concomitant]
     Route: 065
  5. TENOFOVIR DISOPROXIL FUMARATE [Concomitant]
     Indication: ANTIRETROVIRAL THERAPY
     Route: 065
  6. FLUCONAZOLE [Concomitant]
     Indication: ANTIRETROVIRAL THERAPY
     Route: 065
  7. ACYCLOVIR [Suspect]
     Indication: RETINAL DISORDER
     Route: 042
  8. DAPSONE [Concomitant]
     Indication: ANTIRETROVIRAL THERAPY
     Route: 065
  9. EFAVIRENZ [Concomitant]
     Route: 065
  10. CHLORPHENIRAMINE MALEATE [Concomitant]
     Indication: RASH MACULAR
     Route: 065
  11. DEXAMETHASONE [Concomitant]
     Indication: RETINAL DISORDER
     Route: 065
  12. LAMIVUDINE [Concomitant]
     Indication: ANTIRETROVIRAL THERAPY
     Route: 065
  13. GANCICLOVIR [Concomitant]
     Route: 065
  14. AMOXICILLIN [Suspect]
     Indication: LOWER RESPIRATORY TRACT INFECTION
     Route: 065

REACTIONS (7)
  - ANGIOEDEMA [None]
  - DRUG HYPERSENSITIVITY [None]
  - RASH MACULAR [None]
  - RASH MACULO-PAPULAR [None]
  - CD4 LYMPHOCYTES DECREASED [None]
  - CHEST DISCOMFORT [None]
  - VISION BLURRED [None]
